FAERS Safety Report 13995138 (Version 1)
Quarter: 2017Q3

REPORT INFORMATION
  Report Type: Spontaneous
  Country: US (occurrence: None)
  Receive Date: 20170921
  Receipt Date: 20170921
  Transmission Date: 20171128
  Serious: No
  Sender: FDA-Public Use
  Company Number: None

PATIENT
  Age: 66 Year
  Sex: Female
  Weight: 79.38 kg

DRUGS (12)
  1. VITAMIN B COMPLEX [Concomitant]
     Active Substance: CYANOCOBALAMIN\DEXPANTHENOL\NIACINAMIDE\PYRIDOXINE HYDROCHLORIDE\RIBOFLAVIN 5^-PHOSPHATE SODIUM\THIAMINE HYDROCHLORIDE\VITAMIN B COMPLEX
  2. FASLODEX [Suspect]
     Active Substance: FULVESTRANT
     Indication: BREAST CANCER RECURRENT
     Dosage: 2 INJECTIONS DAY 1, 15, 29 AND THEN 4 WEEKS, IM ON DAY 15 - TOO HOT
     Dates: start: 20170726
  3. RED RICE YEAST [Concomitant]
     Active Substance: DIETARY SUPPLEMENT
  4. PREMARIN CREAM [Concomitant]
  5. CARVEDILOL. [Concomitant]
     Active Substance: CARVEDILOL
  6. LOSARTAN. [Concomitant]
     Active Substance: LOSARTAN
  7. MUCINEX [Concomitant]
     Active Substance: GUAIFENESIN
  8. TUMERIC [Concomitant]
     Active Substance: HERBALS\TURMERIC
  9. VAGIFEM [Concomitant]
     Active Substance: ESTRADIOL
  10. NIACIN. [Concomitant]
     Active Substance: NIACIN
  11. ZOLPIDEM [Concomitant]
     Active Substance: ZOLPIDEM\ZOLPIDEM TARTRATE
  12. SPIRONOLACTONE. [Concomitant]
     Active Substance: SPIRONOLACTONE

REACTIONS (4)
  - Pain [None]
  - Feeling hot [None]
  - Pruritus [None]
  - Wrong technique in product usage process [None]

NARRATIVE: CASE EVENT DATE: 20170809
